FAERS Safety Report 21347343 (Version 1)
Quarter: 2022Q3

REPORT INFORMATION
  Report Type: Spontaneous
  Country: GB (occurrence: GB)
  Receive Date: 20220919
  Receipt Date: 20220919
  Transmission Date: 20221027
  Serious: Yes (Hospitalization, Other)
  Sender: FDA-Public Use
  Company Number: GB-NOVARTISPH-NVSC2022GB207571

PATIENT
  Age: 67 Year
  Sex: Female

DRUGS (14)
  1. CAPECITABINE [Suspect]
     Active Substance: CAPECITABINE
     Indication: Hormone receptor positive HER2 negative breast cancer
     Dosage: 1000 MG, UNK (EVERY 4 DAYS)
     Route: 048
  2. PACLITAXEL [Suspect]
     Active Substance: PACLITAXEL
     Indication: Hormone receptor positive HER2 negative breast cancer
     Dosage: 141 MG, QMO
     Route: 042
     Dates: start: 20151124, end: 20151221
  3. PACLITAXEL [Suspect]
     Active Substance: PACLITAXEL
     Dosage: 141 MG
     Route: 042
     Dates: start: 20161122
  4. EXEMESTANE [Suspect]
     Active Substance: EXEMESTANE
     Indication: Hormone receptor positive HER2 negative breast cancer
     Dosage: 25 MG, QD
     Route: 048
     Dates: start: 20160531, end: 20160610
  5. EXEMESTANE [Suspect]
     Active Substance: EXEMESTANE
     Dosage: UNK
     Route: 048
     Dates: start: 20160712
  6. EXEMESTANE [Suspect]
     Active Substance: EXEMESTANE
     Dosage: UNK
     Route: 065
  7. TAMOXIFEN [Suspect]
     Active Substance: TAMOXIFEN
     Indication: Hormone receptor positive HER2 negative breast cancer
     Dosage: 600 MG
     Route: 048
  8. TAMOXIFEN [Suspect]
     Active Substance: TAMOXIFEN
     Dosage: 20 MG, QD
     Route: 065
     Dates: start: 20160712, end: 20160802
  9. TAMOXIFEN [Suspect]
     Active Substance: TAMOXIFEN
     Dosage: 600 MG, TIW
     Route: 065
     Dates: start: 20160712, end: 20160802
  10. TRASTUZUMAB [Suspect]
     Active Substance: TRASTUZUMAB
     Indication: Hormone receptor positive HER2 negative breast cancer
     Dosage: 600 MG, Q3W (FORMULATION: INJECTION)
     Route: 058
     Dates: start: 20151124, end: 20151221
  11. TRASTUZUMAB [Suspect]
     Active Substance: TRASTUZUMAB
     Dosage: 600 MG, Q3W (FORMULATION: INJECTION)
     Route: 058
     Dates: start: 20160531, end: 20161115
  12. ADALIMUMAB [Suspect]
     Active Substance: ADALIMUMAB
     Indication: Product used for unknown indication
     Dosage: 40 MG, Q2W
     Route: 058
     Dates: start: 20151124
  13. HYALURONIDASE [Suspect]
     Active Substance: HYALURONIDASE
     Indication: HER2 positive breast cancer
     Dosage: 600 MG, TIW
     Route: 058
     Dates: start: 20151124, end: 20151221
  14. HYALURONIDASE [Suspect]
     Active Substance: HYALURONIDASE
     Dosage: 600 MG, TIW
     Route: 058
     Dates: start: 20160531

REACTIONS (20)
  - Ill-defined disorder [Unknown]
  - Crohn^s disease [Not Recovered/Not Resolved]
  - Colitis ulcerative [Recovered/Resolved]
  - Abdominal pain upper [Unknown]
  - Neck pain [Unknown]
  - Product administered at inappropriate site [Unknown]
  - Rectal haemorrhage [Unknown]
  - Injection site pain [Unknown]
  - Irritability [Recovered/Resolved]
  - Musculoskeletal stiffness [Not Recovered/Not Resolved]
  - Depressed mood [Unknown]
  - Insomnia [Unknown]
  - Sinusitis [Unknown]
  - Muscle twitching [Unknown]
  - Crying [Unknown]
  - Back pain [Recovered/Resolved]
  - Headache [Unknown]
  - Fatigue [Unknown]
  - Tremor [Unknown]
  - Malaise [Unknown]
